FAERS Safety Report 8108395 (Version 10)
Quarter: 2015Q3

REPORT INFORMATION
  Report Type: Report from Study
  Country: DE (occurrence: DE)
  Receive Date: 20110826
  Receipt Date: 20150724
  Transmission Date: 20151125
  Serious: Yes (Hospitalization, Other)
  Sender: FDA-Public Use
  Company Number: DE-BRISTOL-MYERS SQUIBB COMPANY-15812704

PATIENT
  Age: 52 Year
  Sex: Male
  Weight: 76 kg

DRUGS (4)
  1. IPILIMUMAB [Suspect]
     Active Substance: IPILIMUMAB
     Indication: MALIGNANT MELANOMA
     Dosage: 10MG/KG
     Route: 042
     Dates: start: 20110511, end: 20110601
  2. SELENIUM [Concomitant]
     Active Substance: SELENIUM
     Indication: PRODUCT USED FOR UNKNOWN INDICATION
     Dosage: SELENIUM D12
     Route: 065
     Dates: start: 20110502, end: 20110602
  3. URTICA [Concomitant]
     Indication: PRODUCT USED FOR UNKNOWN INDICATION
     Dosage: URTICA D4
     Route: 065
     Dates: start: 20110511, end: 20110602
  4. PODOPHYLLUM [Concomitant]
     Active Substance: PODOPHYLLUM
     Indication: PRODUCT USED FOR UNKNOWN INDICATION
     Dosage: PODOPHYLLUM C6
     Route: 065
     Dates: start: 20110527, end: 20110602

REACTIONS (8)
  - Autoimmune hepatitis [Recovered/Resolved]
  - Arthritis [Recovered/Resolved]
  - Depression [Recovered/Resolved with Sequelae]
  - Atrial fibrillation [Recovered/Resolved]
  - Fibrosis [Unknown]
  - Colitis [Recovered/Resolved]
  - Staphylococcal infection [Recovered/Resolved]
  - Pyrexia [Recovering/Resolving]

NARRATIVE: CASE EVENT DATE: 20110601
